FAERS Safety Report 20012078 (Version 1)
Quarter: 2021Q4

REPORT INFORMATION
  Report Type: Spontaneous
  Country: US (occurrence: US)
  Receive Date: 20211029
  Receipt Date: 20211029
  Transmission Date: 20220303
  Serious: Yes (Death, Other)
  Sender: FDA-Public Use
  Company Number: US-AMGEN-USASP2021167739

PATIENT
  Age: 76 Year
  Sex: Male

DRUGS (3)
  1. PANITUMUMAB [Suspect]
     Active Substance: PANITUMUMAB
     Indication: Gallbladder cancer
     Dosage: 6 MILLIGRAM/KILOGRAM, Q2WK
     Route: 065
  2. PANITUMUMAB [Suspect]
     Active Substance: PANITUMUMAB
     Indication: Off label use
  3. BEVACIZUMAB [Concomitant]
     Active Substance: BEVACIZUMAB
     Indication: Gallbladder cancer metastatic
     Dosage: 5 MILLIGRAM/KILOGRAM, Q2WK

REACTIONS (5)
  - Death [Fatal]
  - Drug effective for unapproved indication [Unknown]
  - Performance status decreased [Unknown]
  - Malaise [Unknown]
  - Off label use [Unknown]
